FAERS Safety Report 23354780 (Version 4)
Quarter: 2025Q3

REPORT INFORMATION
  Report Type: Report from Study
  Country: JP (occurrence: JP)
  Receive Date: 20240101
  Receipt Date: 20250811
  Transmission Date: 20251020
  Serious: Yes (Life-Threatening, Hospitalization, Other)
  Sender: ALEXION PHARMACEUTICALS
  Company Number: 2023A267686

PATIENT
  Age: 67 Year
  Sex: Male
  Weight: 79 kg

DRUGS (5)
  1. DURVALUMAB [Suspect]
     Active Substance: DURVALUMAB
     Indication: Non-small cell lung cancer
     Dosage: 1500 MILLIGRAM, UNK
     Dates: start: 20230425, end: 20230530
  2. TREMELIMUMAB [Suspect]
     Active Substance: TREMELIMUMAB
     Indication: Non-small cell lung cancer
     Dosage: 75 MILLIGRAM, UNK
     Dates: start: 20230425, end: 20230530
  3. CARBOPLATIN [Concomitant]
     Active Substance: CARBOPLATIN
     Indication: Non-small cell lung cancer
     Dates: start: 20230425, end: 20230425
  4. CARBOPLATIN [Concomitant]
     Active Substance: CARBOPLATIN
     Dates: start: 20230530, end: 20230530
  5. PACLITAXEL [Concomitant]
     Active Substance: PACLITAXEL
     Indication: Non-small cell lung cancer
     Dates: start: 20230425, end: 20230530

REACTIONS (5)
  - Pulmonary toxicity [Recovering/Resolving]
  - Colitis [Recovered/Resolved]
  - C-reactive protein increased [Recovered/Resolved]
  - Neutrophil count increased [Recovered/Resolved]
  - Pyrexia [Recovered/Resolved]
